FAERS Safety Report 7494280-6 (Version None)
Quarter: 2011Q2

REPORT INFORMATION
  Report Type: 
  Country: None (occurrence: None)
  Receive Date: 20110520
  Receipt Date: 20110120
  Transmission Date: 20111010
  Serious: Yes (Hospitalization, Other)
  Sender: FDA-Public Use
  Company Number: US-BAYER-201034069NA

PATIENT
  Age: 20 Year
  Sex: Female
  Weight: 102.4 kg

DRUGS (8)
  1. ALBUTEROL [Concomitant]
  2. METFORMIN HCL [Concomitant]
     Dosage: 250 MG, QD
  3. LITHIUM CARBONATE [Concomitant]
     Dosage: 300 MG, QD
     Route: 048
  4. YAZ [Suspect]
     Indication: PREMENSTRUAL SYNDROME
     Dosage: UNK
     Dates: start: 20090101, end: 20090201
  5. YAZ [Suspect]
  6. CEFTIN [Concomitant]
     Indication: PNEUMONIA
     Dosage: 1000 MG, QD
  7. BIAXIN [Concomitant]
     Indication: PNEUMONIA
     Dosage: 1000 MG, QD
  8. DIFLUCAN [Concomitant]
     Indication: FUNGAL INFECTION
     Dosage: 150 MG, UNK
     Route: 067
     Dates: start: 20090203

REACTIONS (6)
  - PAIN [None]
  - CHOLECYSTITIS CHRONIC [None]
  - CHOLECYSTECTOMY [None]
  - CHOLELITHIASIS [None]
  - CHOLESTEROSIS [None]
  - CHOLECYSTITIS ACUTE [None]
